FAERS Safety Report 18586433 (Version 1)
Quarter: 2020Q4

REPORT INFORMATION
  Report Type: Spontaneous
  Country: GB (occurrence: GB)
  Receive Date: 20201207
  Receipt Date: 20201207
  Transmission Date: 20210114
  Serious: Yes (Hospitalization, Other)
  Sender: FDA-Public Use
  Company Number: GB-BRISTOL-MYERS SQUIBB COMPANY-BMS-2020-100014

PATIENT
  Age: 58 Year
  Sex: Female

DRUGS (1)
  1. KENALOG [Suspect]
     Active Substance: TRIAMCINOLONE ACETONIDE
     Indication: OSTEOARTHRITIS
     Dosage: 10 MILLIGRAM
     Route: 014
     Dates: start: 20200913, end: 20200913

REACTIONS (1)
  - Administration site joint infection [Recovered/Resolved]

NARRATIVE: CASE EVENT DATE: 20200925
